FAERS Safety Report 11514018 (Version 1)
Quarter: 2015Q3

REPORT INFORMATION
  Report Type: Spontaneous
  Country: US (occurrence: US)
  Receive Date: 20150916
  Receipt Date: 20150916
  Transmission Date: 20151125
  Serious: Yes (Other)
  Sender: FDA-Public Use
  Company Number: US-PFIZER INC-2015306352

PATIENT
  Age: 80 Year
  Sex: Male
  Weight: 56.69 kg

DRUGS (5)
  1. PREVACID [Concomitant]
     Active Substance: LANSOPRAZOLE
     Dosage: 30 MG, 1-2 CAPSULES AS NEEDED
  2. CELEBREX [Suspect]
     Active Substance: CELECOXIB
     Indication: ARTHRITIS
     Dosage: UNK
     Dates: start: 1985
  3. PREVACID [Concomitant]
     Active Substance: LANSOPRAZOLE
     Indication: GASTROOESOPHAGEAL REFLUX DISEASE
     Dosage: 60 MG, 1X/DAY
  4. OXYCODONE [Concomitant]
     Active Substance: OXYCODONE
     Dosage: THREE A DAY AND SOMETIMES FOUR A DAY, POSSIBLY 320/15
  5. CELEBREX [Suspect]
     Active Substance: CELECOXIB
     Dosage: 200 MG, DAILY
     Dates: start: 20150401

REACTIONS (2)
  - Atrial fibrillation [Unknown]
  - Drug ineffective [Not Recovered/Not Resolved]
